FAERS Safety Report 8174612-6 (Version None)
Quarter: 2012Q1

REPORT INFORMATION
  Report Type: 
  Country: None (occurrence: None)
  Receive Date: 20120229
  Receipt Date: 20120228
  Transmission Date: 20120608
  Serious: No
  Sender: FDA-Public Use
  Company Number: US-PFIZER INC-2012052992

PATIENT
  Sex: Male
  Weight: 97.5 kg

DRUGS (7)
  1. CHANTIX [Suspect]
     Dosage: 0.5 MG, 2X/DAY
     Route: 048
     Dates: start: 20111001, end: 20110101
  2. SYNTHROID [Concomitant]
     Indication: HYPOTHYROIDISM
     Dosage: UNK
  3. DIOVAN [Concomitant]
     Dosage: UNK
  4. CHANTIX [Suspect]
     Indication: SMOKING CESSATION THERAPY
     Dosage: 0.5 MG, 1X/DAY
     Route: 048
     Dates: start: 20111001, end: 20111001
  5. TOPROL-XL [Concomitant]
     Dosage: UNK
  6. TRILIPIX [Concomitant]
     Dosage: UNK
  7. NEXIUM [Concomitant]
     Dosage: UNK

REACTIONS (1)
  - FATIGUE [None]
